FAERS Safety Report 5277973-0 (Version None)
Quarter: 2007Q1

REPORT INFORMATION
  Report Type: 
  Country: None (occurrence: None)
  Receive Date: 20070321
  Receipt Date: 20070312
  Transmission Date: 20070707
  Serious: Yes (Hospitalization)
  Sender: FDA-Public Use
  Company Number: 111544ISR

PATIENT
  Age: 72 Year
  Sex: Female

DRUGS (6)
  1. FLUOROURACIL [Suspect]
     Indication: GASTRIC CANCER
     Dosage: SEE IMAGE
     Route: 041
     Dates: start: 20051109, end: 20051114
  2. FLUOROURACIL [Suspect]
     Indication: GASTRIC CANCER
     Dosage: SEE IMAGE
     Route: 041
     Dates: start: 20050720
  3. CISPLATIN [Suspect]
     Indication: GASTRIC CANCER
     Dosage: SEE IMAGE
     Route: 041
     Dates: start: 20051109, end: 20051109
  4. CISPLATIN [Suspect]
     Indication: GASTRIC CANCER
     Dosage: SEE IMAGE
     Route: 041
     Dates: start: 20050720
  5. WARFARIN SODIUM [Concomitant]
  6. NEUROBION /00176001/ [Concomitant]

REACTIONS (9)
  - ASTHENIA [None]
  - BACK PAIN [None]
  - BALANCE DISORDER [None]
  - CONTUSION [None]
  - FALL [None]
  - GAIT DISTURBANCE [None]
  - HAEMOGLOBIN DECREASED [None]
  - PARAESTHESIA [None]
  - PERIPHERAL SENSORY NEUROPATHY [None]
